FAERS Safety Report 6278008-3 (Version None)
Quarter: 2009Q3

REPORT INFORMATION
  Report Type: 
  Country: None (occurrence: None)
  Receive Date: 20090722
  Receipt Date: 20090710
  Transmission Date: 20100115
  Serious: Yes (Other)
  Sender: FDA-Public Use
  Company Number: PHHY2009JP26924

PATIENT
  Age: 76 Year
  Sex: Female

DRUGS (4)
  1. CYCLOSPORINE [Suspect]
     Indication: PUSTULAR PSORIASIS
     Dosage: UNK
  2. ETRETINATE [Concomitant]
     Indication: PUSTULAR PSORIASIS
     Dosage: UNK
     Route: 048
     Dates: start: 19820101
  3. STEROIDS NOS [Concomitant]
     Indication: PUSTULAR PSORIASIS
     Route: 048
  4. ANTI-TUMOR NECROSIS FACTOR MONOCLON. ANTIBODY [Concomitant]

REACTIONS (5)
  - BLISTER [None]
  - ERYTHEMA [None]
  - PEMPHIGOID [None]
  - PSORIASIS [None]
  - PUSTULAR PSORIASIS [None]
